FAERS Safety Report 14122323 (Version 1)
Quarter: 2017Q4

REPORT INFORMATION
  Report Type: Spontaneous
  Country: US (occurrence: US)
  Receive Date: 20171024
  Receipt Date: 20171024
  Transmission Date: 20180321
  Serious: No
  Sender: FDA-Public Use
  Company Number: US-IMPAX LABORATORIES, INC-2017-IPXL-02725

PATIENT
  Sex: Male
  Weight: 75 kg

DRUGS (2)
  1. RYTARY [Suspect]
     Active Substance: CARBIDOPA\LEVODOPA
     Indication: PRODUCT USED FOR UNKNOWN INDICATION
     Dosage: 9 DF, DAILY
     Route: 065
     Dates: start: 2016
  2. RYTARY [Suspect]
     Active Substance: CARBIDOPA\LEVODOPA
     Dosage: 6 DF, DAILY
     Route: 065

REACTIONS (5)
  - Freezing phenomenon [Recovering/Resolving]
  - Weight decreased [Unknown]
  - Dyskinesia [Recovering/Resolving]
  - Abnormal behaviour [Recovering/Resolving]
  - Sexually inappropriate behaviour [Unknown]

NARRATIVE: CASE EVENT DATE: 2016
